FAERS Safety Report 23463047 (Version 4)
Quarter: 2024Q1

REPORT INFORMATION
  Report Type: Spontaneous
  Country: US (occurrence: US)
  Receive Date: 20240131
  Receipt Date: 20240305
  Transmission Date: 20240409
  Serious: Yes (Other)
  Sender: FDA-Public Use
  Company Number: US-PFIZER INC-PV202300173009

PATIENT
  Age: 69 Year
  Sex: Female
  Weight: 134.69 kg

DRUGS (2)
  1. XELJANZ XR [Suspect]
     Active Substance: TOFACITINIB CITRATE
     Indication: Rheumatoid arthritis
     Dosage: 11 MG, 1X/DAY
     Route: 048
  2. DEXILANT [Concomitant]
     Active Substance: DEXLANSOPRAZOLE
     Indication: Crohn^s disease
     Dosage: UNK

REACTIONS (4)
  - Sinusitis bacterial [Unknown]
  - Therapeutic response unexpected [Unknown]
  - Pain [Unknown]
  - Loss of personal independence in daily activities [Unknown]
